FAERS Safety Report 13181421 (Version 1)
Quarter: 2017Q1

REPORT INFORMATION
  Report Type: Report from Study
  Country: US (occurrence: US)
  Receive Date: 20170202
  Receipt Date: 20170202
  Transmission Date: 20170428
  Serious: No
  Sender: FDA-Public Use
  Company Number: US-AMGEN-USASL2017011660

PATIENT
  Age: 60 Year
  Sex: Female

DRUGS (1)
  1. ENBREL [Suspect]
     Active Substance: ETANERCEPT
     Indication: ANKYLOSING SPONDYLITIS
     Dosage: 50 MG, QWK
     Route: 065

REACTIONS (8)
  - Stress [Unknown]
  - Oral candidiasis [Unknown]
  - Decreased appetite [Unknown]
  - Vulvovaginal mycotic infection [Unknown]
  - Dry eye [Unknown]
  - Pain [Recovering/Resolving]
  - Ear infection [Unknown]
  - Weight decreased [Unknown]
